FAERS Safety Report 9136526 (Version 1)
Quarter: 2013Q1

REPORT INFORMATION
  Report Type: Spontaneous
  Country: US (occurrence: US)
  Receive Date: 20130304
  Receipt Date: 20130304
  Transmission Date: 20140127
  Serious: No
  Sender: FDA-Public Use
  Company Number: US-ABBOTT-12P-163-0926928-00

PATIENT
  Sex: Male
  Weight: 98.06 kg

DRUGS (5)
  1. ANDROGEL 1% [Suspect]
     Indication: BLOOD TESTOSTERONE DECREASED
     Dosage: 2 PUMPS PER DAY
     Dates: start: 201009, end: 201103
  2. ANDROGEL 1% [Suspect]
     Dosage: 4 PUMPS PER DAY
     Dates: start: 201103, end: 201109
  3. ANDROGEL 1% [Suspect]
     Dosage: 5 PUMPS PER DAY
     Dates: start: 201109, end: 201204
  4. ANDROGEL 1% [Suspect]
     Dosage: 6 PUMPS PER DAY
     Dates: start: 201204
  5. MULTIVITAMINS [Concomitant]
     Indication: PRODUCT USED FOR UNKNOWN INDICATION

REACTIONS (1)
  - Blood testosterone decreased [Not Recovered/Not Resolved]
